FAERS Safety Report 21010996 (Version 6)
Quarter: 2022Q3

REPORT INFORMATION
  Report Type: Spontaneous
  Country: US (occurrence: US)
  Receive Date: 20220627
  Receipt Date: 20220815
  Transmission Date: 20221027
  Serious: No
  Sender: FDA-Public Use
  Company Number: US-ELI_LILLY_AND_COMPANY-US202206011874

PATIENT
  Age: 74 Year
  Sex: Female
  Weight: 87.075 kg

DRUGS (7)
  1. TADALAFIL [Suspect]
     Active Substance: TADALAFIL
     Indication: Pulmonary arterial hypertension
     Dosage: UNK UNK, UNKNOWN
     Route: 065
  2. TYVASO [Suspect]
     Active Substance: TREPROSTINIL
     Indication: Pulmonary arterial hypertension
     Dosage: UNK UNK, QID (3-12 BREATHS )
     Route: 055
     Dates: start: 20220524
  3. TYVASO [Suspect]
     Active Substance: TREPROSTINIL
     Dosage: UNK UNK, UNKNOWN (5 BREATHS)
     Route: 055
     Dates: start: 20220524
  4. TYVASO [Suspect]
     Active Substance: TREPROSTINIL
     Dosage: UNK UNK, QID (8 BREATHS)
     Route: 055
  5. AMLODIPINE [Concomitant]
     Active Substance: AMLODIPINE BESYLATE
     Indication: Product used for unknown indication
     Dosage: UNK, UNKNOWN
  6. ELIQUIS [Concomitant]
     Active Substance: APIXABAN
     Indication: Product used for unknown indication
     Dosage: UNK, UNKNOWN
  7. CLARITIN [Concomitant]
     Active Substance: LORATADINE
     Indication: Hypersensitivity

REACTIONS (16)
  - Erythema [Unknown]
  - Restlessness [Unknown]
  - Memory impairment [Unknown]
  - Sinus disorder [Unknown]
  - Sinus congestion [Unknown]
  - Glossodynia [Unknown]
  - Cough [Unknown]
  - Hypersomnia [Unknown]
  - Pruritus [Unknown]
  - Rhinorrhoea [Unknown]
  - Epistaxis [Unknown]
  - Headache [Unknown]
  - Blood pressure decreased [Unknown]
  - Head discomfort [Unknown]
  - Hypersensitivity [Unknown]
  - Product dose omission issue [Unknown]

NARRATIVE: CASE EVENT DATE: 20220524
